FAERS Safety Report 18491921 (Version 2)
Quarter: 2021Q1

REPORT INFORMATION
  Report Type: Spontaneous
  Country: US (occurrence: US)
  Receive Date: 20201111
  Receipt Date: 20210104
  Transmission Date: 20210419
  Serious: Yes (Hospitalization)
  Sender: FDA-Public Use
  Company Number: US-TEVA-2020-US-1846307

PATIENT
  Age: 4 Month
  Sex: Male
  Weight: 7.07 kg

DRUGS (3)
  1. ACETAMINOPHEN. [Concomitant]
     Active Substance: ACETAMINOPHEN
     Indication: PYREXIA
     Route: 065
  2. OSELTAMIVIR [Suspect]
     Active Substance: OSELTAMIVIR
     Dosage: 42 MILLIGRAM DAILY; 3 MG/KG/DOSE; PREPARED AS A PATIENT?SPECIFIC DOSE FROM A COMMERCIALLY AVAILABLE
     Route: 065
  3. OSELTAMIVIR [Suspect]
     Active Substance: OSELTAMIVIR
     Indication: INFLUENZA
     Dosage: 42 MILLIGRAM DAILY; OSELTAMIVIR (3MG/KG/DOSE); TOTAL 2 DOSES WERE ADMINISTERED; THE MANUFACTURER OF
     Route: 065

REACTIONS (1)
  - Supraventricular tachycardia [Recovered/Resolved]
